FAERS Safety Report 8484840-8 (Version None)
Quarter: 2012Q3

REPORT INFORMATION
  Report Type: 
  Country: None (occurrence: None)
  Receive Date: 20120703
  Receipt Date: 20120625
  Transmission Date: 20120928
  Serious: Yes (Other)
  Sender: FDA-Public Use
  Company Number: PL-ROXANE LABORATORIES, INC.-2012-RO-01480RO

PATIENT
  Age: 60 Year
  Sex: Female

DRUGS (3)
  1. DEXAMETHASONE [Suspect]
     Indication: PREMEDICATION
  2. PACLITAXEL [Suspect]
     Indication: FALLOPIAN TUBE CANCER STAGE III
  3. CARBOPLATIN [Suspect]
     Indication: FALLOPIAN TUBE CANCER STAGE III

REACTIONS (6)
  - ABDOMINAL PAIN [None]
  - BLOOD CORTISOL DECREASED [None]
  - DIZZINESS [None]
  - ORTHOSTATIC HYPOTENSION [None]
  - MYALGIA [None]
  - ARTHRALGIA [None]
